FAERS Safety Report 5034438-9 (Version None)
Quarter: 2006Q2

REPORT INFORMATION
  Report Type: 
  Country: None (occurrence: None)
  Receive Date: 20060626
  Receipt Date: 20060210
  Transmission Date: 20061013
  Serious: Yes (Life-Threatening, Disabling, Other)
  Sender: FDA-Public Use
  Company Number: US-MERCK-0602USA02668

PATIENT
  Age: 63 Year
  Sex: Female
  Weight: 105 kg

DRUGS (17)
  1. VYTORIN [Suspect]
     Indication: BLOOD CHOLESTEROL INCREASED
     Route: 048
     Dates: start: 20051004, end: 20060111
  2. AMPICILLIN [Concomitant]
     Route: 065
  3. CEFAZOLIN SODIUM [Concomitant]
     Route: 065
  4. CEFUROXIME [Concomitant]
     Route: 065
  5. CEPHALOTHIN SODIUM [Concomitant]
     Route: 065
  6. CIPROFLOXACIN [Concomitant]
     Route: 065
  7. GENTAMICIN [Concomitant]
     Route: 065
  8. NITROFURANTOIN [Concomitant]
     Route: 065
  9. TETRACYCLINE [Concomitant]
     Route: 065
  10. BACTRIM [Concomitant]
     Route: 065
  11. VICODIN [Concomitant]
     Route: 048
  12. CLONAZEPAM [Concomitant]
     Route: 065
     Dates: end: 20060111
  13. PRINIVIL [Concomitant]
     Route: 048
  14. POTASSIUM (UNSPECIFIED) [Concomitant]
     Route: 065
  15. HYDRODIURIL [Concomitant]
     Route: 048
  16. LABETALOL HYDROCHLORIDE [Concomitant]
     Route: 065
  17. LEVOTHYROXINE SODIUM [Concomitant]
     Route: 065

REACTIONS (8)
  - ASPARTATE AMINOTRANSFERASE INCREASED [None]
  - ASTHENIA [None]
  - DYSARTHRIA [None]
  - MUSCLE SPASMS [None]
  - MUSCULAR WEAKNESS [None]
  - PAIN IN EXTREMITY [None]
  - RHABDOMYOLYSIS [None]
  - URINARY TRACT INFECTION [None]
